FAERS Safety Report 17865672 (Version 2)
Quarter: 2020Q2

REPORT INFORMATION
  Report Type: Report from Study
  Country: ES (occurrence: ES)
  Receive Date: 20200605
  Receipt Date: 20200608
  Transmission Date: 20200714
  Serious: Yes (Life-Threatening, Hospitalization, Other)
  Sender: FDA-Public Use
  Company Number: ES-CELGENEUS-ESP-20200600736

PATIENT
  Age: 64 Year
  Sex: Male

DRUGS (7)
  1. CLEXANE [Concomitant]
     Active Substance: ENOXAPARIN SODIUM
     Indication: PROPHYLAXIS
     Dosage: 40 MILLIGRAM
     Route: 058
     Dates: start: 20181205
  2. POMALIDOMIDE [Suspect]
     Active Substance: POMALIDOMIDE
     Indication: PLASMA CELL MYELOMA
     Dosage: 4 MILLIGRAM
     Route: 048
     Dates: start: 20181128, end: 20181218
  3. DEXAMETHASONE. [Suspect]
     Active Substance: DEXAMETHASONE
     Indication: PLASMA CELL MYELOMA
     Route: 048
     Dates: start: 20181128, end: 20181212
  4. OMEPRAZOLE. [Concomitant]
     Active Substance: OMEPRAZOLE
     Indication: PROPHYLAXIS
     Dosage: 20 MILLIGRAM
     Route: 048
     Dates: start: 20181128
  5. ACYCLOVIR. [Concomitant]
     Active Substance: ACYCLOVIR
     Indication: PROPHYLAXIS
     Dosage: 800 MILLIGRAM
     Route: 048
     Dates: start: 20181128
  6. MORPHINE [Concomitant]
     Active Substance: MORPHINE
     Indication: BONE PAIN
     Dosage: 40 MILLIGRAM
     Route: 048
     Dates: start: 20181212
  7. LEVOFLOXACIN. [Concomitant]
     Active Substance: LEVOFLOXACIN
     Indication: UPPER RESPIRATORY TRACT INFECTION
     Dosage: 500 MILLIGRAM
     Route: 048
     Dates: start: 20181205, end: 20181212

REACTIONS (2)
  - Febrile neutropenia [Recovered/Resolved]
  - Spinal cord compression [Recovered/Resolved]

NARRATIVE: CASE EVENT DATE: 20181219
